FAERS Safety Report 8623479-8 (Version None)
Quarter: 2012Q3

REPORT INFORMATION
  Report Type: 
  Country: None (occurrence: None)
  Receive Date: 20120827
  Receipt Date: 20120817
  Transmission Date: 20120928
  Serious: No
  Sender: FDA-Public Use
  Company Number: US-B.I. PHARMACEUTICALS,INC./RIDGEFIELD-2012-BP-17037BP

PATIENT
  Sex: Female
  Weight: 49.9 kg

DRUGS (8)
  1. ASPIRIN [Concomitant]
     Indication: MYOCARDIAL INFARCTION
     Dosage: 162 MG
     Route: 048
  2. SPIRIVA [Suspect]
     Indication: BRONCHIECTASIS
     Dosage: 18 MCG
     Route: 055
     Dates: start: 20120702
  3. PRAVASTATIN [Concomitant]
     Indication: BLOOD CHOLESTEROL INCREASED
     Dosage: 40 MG
     Route: 048
  4. XANAX [Concomitant]
     Indication: ANXIETY
     Route: 048
  5. RANEXA [Concomitant]
     Indication: ANGINA PECTORIS
     Route: 048
  6. CARDIZEM [Concomitant]
     Indication: ANGINA PECTORIS
     Dosage: 120 MG
     Route: 048
  7. ISOSORBIDE [Concomitant]
     Indication: ANGINA PECTORIS
     Dosage: 30 MG
     Route: 048
  8. NITROGLYCERIN [Concomitant]
     Indication: ANGINA PECTORIS

REACTIONS (5)
  - DRY MOUTH [None]
  - OROPHARYNGEAL PAIN [None]
  - DYSPHONIA [None]
  - CONSTIPATION [None]
  - FATIGUE [None]
